FAERS Safety Report 8082681-7 (Version None)
Quarter: 2012Q1

REPORT INFORMATION
  Report Type: 
  Country: None (occurrence: None)
  Receive Date: 20120127
  Receipt Date: 20110224
  Transmission Date: 20120608
  Serious: No
  Sender: FDA-Public Use
  Company Number: US-ABBOTT-11P-163-0707566-00

PATIENT
  Sex: Female
  Weight: 58.112 kg

DRUGS (11)
  1. VITAMIN D [Concomitant]
     Indication: MINERAL SUPPLEMENTATION
     Route: 048
  2. VITAMIN B-12 [Concomitant]
     Indication: CROHN'S DISEASE
     Route: 058
  3. AMBIEN [Concomitant]
     Indication: INSOMNIA
     Route: 048
  4. TOPIRAMATE [Concomitant]
     Indication: MIGRAINE
     Route: 048
  5. HUMIRA [Suspect]
     Indication: CROHN'S DISEASE
     Route: 058
     Dates: start: 20110113
  6. MIRAPEX [Concomitant]
     Indication: RESTLESS LEGS SYNDROME
     Route: 048
  7. CALCIUM [Concomitant]
     Indication: VITAMIN SUPPLEMENTATION
     Route: 048
  8. XIFARAXAN [Concomitant]
     Indication: CROHN'S DISEASE
     Route: 048
  9. ENTOCORT EC [Concomitant]
     Indication: CROHN'S DISEASE
     Route: 048
  10. DOXEPIN [Concomitant]
     Indication: INSOMNIA
     Dosage: AT NIGHT
     Route: 048
  11. CELEXA [Concomitant]
     Indication: DEPRESSION
     Route: 048

REACTIONS (1)
  - CYSTITIS [None]
